FAERS Safety Report 21282949 (Version 2)
Quarter: 2022Q3

REPORT INFORMATION
  Report Type: Spontaneous
  Country: GB (occurrence: GB)
  Receive Date: 20220901
  Receipt Date: 20220913
  Transmission Date: 20221027
  Serious: Yes (Other)
  Sender: FDA-Public Use
  Company Number: GB-MYLANLABS-2022M1088694

PATIENT
  Age: 67 Year
  Sex: Male

DRUGS (5)
  1. CLOZARIL [Suspect]
     Active Substance: CLOZAPINE
     Indication: Schizophrenia
     Dosage: 125 MILLIGRAM, HS, AT NIGHT
     Route: 048
     Dates: start: 20220214, end: 20220818
  2. HYOSCINE HYDROBROMIDE TRIHYDRATE [Concomitant]
     Indication: Product used for unknown indication
     Dosage: 600 MILLIGRAMC, HS,AT NIGHT
     Route: 065
  3. OMEPRAZOLE [Concomitant]
     Active Substance: OMEPRAZOLE
     Indication: Product used for unknown indication
     Dosage: UNK
     Route: 065
  4. THIAMINE [Concomitant]
     Active Substance: THIAMINE
     Indication: Product used for unknown indication
     Dosage: UNK
     Route: 065
  5. POLYETHYLENE GLYCOL 3350\POTASSIUM CHLORIDE\SODIUM BICARBONATE\SODIUM [Concomitant]
     Active Substance: POLYETHYLENE GLYCOL 3350\POTASSIUM CHLORIDE\SODIUM BICARBONATE\SODIUM CHLORIDE
     Indication: Product used for unknown indication
     Dosage: UNK
     Route: 065

REACTIONS (14)
  - Thrombocytopenia [Recovered/Resolved]
  - Neuroleptic malignant syndrome [Unknown]
  - Sepsis [Unknown]
  - Dehydration [Unknown]
  - Malaise [Unknown]
  - Mobility decreased [Unknown]
  - Hypophagia [Unknown]
  - Physical disability [Unknown]
  - Cognitive disorder [Unknown]
  - Impaired self-care [Unknown]
  - Pyrexia [Unknown]
  - Confusional state [Unknown]
  - Constipation [Unknown]
  - Hypotension [Unknown]

NARRATIVE: CASE EVENT DATE: 20220819
